FAERS Safety Report 10009546 (Version 2)
Quarter: 2014Q1

REPORT INFORMATION
  Report Type: Spontaneous
  Country: US (occurrence: US)
  Receive Date: 20140312
  Receipt Date: 20140312
  Transmission Date: 20141002
  Serious: No
  Sender: FDA-Public Use
  Company Number: US-INCYTE CORPORATION-2012IN001366

PATIENT
  Age: 63 Year
  Sex: Male
  Weight: 74.83 kg

DRUGS (1)
  1. JAKAFI [Suspect]
     Indication: MYELOFIBROSIS
     Dosage: 15 MG, Q12H
     Route: 048
     Dates: start: 20120704, end: 20120828

REACTIONS (2)
  - Splenomegaly [Unknown]
  - Headache [Unknown]
